FAERS Safety Report 5475114-8 (Version None)
Quarter: 2007Q4

REPORT INFORMATION
  Report Type: 
  Country: None (occurrence: None)
  Receive Date: 20071002
  Receipt Date: 20070920
  Transmission Date: 20080405
  Serious: No
  Sender: FDA-Public Use
  Company Number: US-BOEHRINGER INGELHEIM PHARMACEUTICALS, INC.-2007-BP-20526BP

PATIENT
  Age: 84 Year
  Sex: Male

DRUGS (7)
  1. SPIRIVA [Suspect]
     Indication: EMPHYSEMA
     Route: 055
     Dates: start: 20060101
  2. ADVAIR DISKUS 100/50 [Concomitant]
  3. METOPROLOL [Concomitant]
  4. SULFOSALAZINE [Concomitant]
  5. FOLIC ACID [Concomitant]
  6. NEXIUM [Concomitant]
  7. PAROXETINE HCL [Concomitant]

REACTIONS (1)
  - VISUAL DISTURBANCE [None]
